FAERS Safety Report 8545684-1 (Version None)
Quarter: 2012Q3

REPORT INFORMATION
  Report Type: 
  Country: None (occurrence: None)
  Receive Date: 20120727
  Receipt Date: 20120126
  Transmission Date: 20120928
  Serious: Yes (Other)
  Sender: FDA-Public Use
  Company Number: CHPA2012US013416

PATIENT
  Sex: Female

DRUGS (4)
  1. EXCEDRIN (MIGRAINE) [Suspect]
     Indication: HEADACHE
     Dosage: UP TO 6 CAPLETS A DAY
     Route: 048
  2. EXCEDRIN (MIGRAINE) [Suspect]
     Dosage: UP TO 6 CAPLETS A DAY
     Route: 048
  3. EXCEDRIN TENSION HEADACHE CAPLETS [Suspect]
     Indication: HEADACHE
     Dosage: UNK, UNK
     Route: 048
  4. EXCEDRIN (MIGRAINE) [Suspect]
     Dosage: UP TO 6 CAPLETS A DAY
     Route: 048

REACTIONS (2)
  - CONSTIPATION [None]
  - ULCER [None]
